FAERS Safety Report 6204731-2 (Version None)
Quarter: 2009Q2

REPORT INFORMATION
  Report Type: 
  Country: None (occurrence: None)
  Receive Date: 20090527
  Receipt Date: 20090515
  Transmission Date: 20091009
  Serious: Yes (Other)
  Sender: FDA-Public Use
  Company Number: SG-PFIZER INC-2009215428

PATIENT
  Age: 58 Year

DRUGS (1)
  1. GLIPIZIDE [Suspect]

REACTIONS (1)
  - CHILLS [None]
